FAERS Safety Report 4370434-2 (Version None)
Quarter: 2004Q2

REPORT INFORMATION
  Report Type: 
  Country: None (occurrence: None)
  Receive Date: 20040603
  Receipt Date: 20040210
  Transmission Date: 20050107
  Serious: No
  Sender: FDA-Public Use
  Company Number: US-BRISTOL-MYERS SQUIBB COMPANY-12501318

PATIENT
  Age: 36 Year
  Sex: Male
  Weight: 104 kg

DRUGS (2)
  1. ABILIFY [Suspect]
     Indication: SCHIZOAFFECTIVE DISORDER
     Dosage: 5MG 01OCT03X1 WEEK,THEN 10MGX1 WEEK,THEN 15MGX1 MONTH,TO 20MG NOV03,TO 30MG ON 19JAN04,20MG 03FEB04
     Route: 048
     Dates: start: 20031001
  2. ZOLOFT [Concomitant]

REACTIONS (2)
  - FATIGUE [None]
  - SOMNOLENCE [None]
